FAERS Safety Report 17872686 (Version 1)
Quarter: 2020Q2

REPORT INFORMATION
  Report Type: Spontaneous
  Country: US (occurrence: US)
  Receive Date: 20200608
  Receipt Date: 20200608
  Transmission Date: 20200714
  Serious: Yes (Other)
  Sender: FDA-Public Use
  Company Number: NVSC2020US158992

PATIENT
  Age: 63 Year
  Sex: Male

DRUGS (6)
  1. BUSPIRONE [Interacting]
     Active Substance: BUSPIRONE HYDROCHLORIDE
     Indication: DEPRESSION
     Dosage: UNK
     Route: 065
  2. DESVENLAFAXINE. [Interacting]
     Active Substance: DESVENLAFAXINE
     Indication: DEPRESSION
     Dosage: UNK
     Route: 065
  3. TRAZODONE [Interacting]
     Active Substance: TRAZODONE HYDROCHLORIDE
     Indication: DEPRESSION
     Dosage: UNK
     Route: 065
  4. BUPROPION. [Suspect]
     Active Substance: BUPROPION
     Indication: DEPRESSION
     Dosage: UNK
     Route: 065
  5. ZIPRASIDONE. [Interacting]
     Active Substance: ZIPRASIDONE
     Indication: DEPRESSION
     Dosage: UNK
     Route: 065
  6. MITRAGYNINE [Interacting]
     Active Substance: HERBALS\MITRAGYNINE
     Indication: DEPRESSION
     Dosage: UNK
     Route: 065

REACTIONS (8)
  - Facial paralysis [Recovering/Resolving]
  - Aphasia [Recovering/Resolving]
  - Flushing [Unknown]
  - Drug interaction [Unknown]
  - Confusional state [Recovering/Resolving]
  - Serotonin syndrome [Recovering/Resolving]
  - Hyperhidrosis [Unknown]
  - Dysarthria [Unknown]
